FAERS Safety Report 5766038-7 (Version None)
Quarter: 2008Q2

REPORT INFORMATION
  Report Type: 
  Country: None (occurrence: None)
  Receive Date: 20080611
  Receipt Date: 20080530
  Transmission Date: 20081010
  Serious: Yes (Hospitalization)
  Sender: FDA-Public Use
  Company Number: FR-PFIZER INC-2008046717

PATIENT
  Sex: Female

DRUGS (4)
  1. LYRICA [Suspect]
     Dosage: DAILY DOSE:200MG
     Route: 048
  2. TOPIRAMATE [Concomitant]
  3. CYAMEMAZINE [Concomitant]
  4. AMITRIPTYLINE HYDROCHLORIDE [Concomitant]
     Dosage: DAILY DOSE:150MG

REACTIONS (1)
  - CYTOLYTIC HEPATITIS [None]
